FAERS Safety Report 6808226-4 (Version None)
Quarter: 2010Q2

REPORT INFORMATION
  Report Type: 
  Country: None (occurrence: None)
  Receive Date: 20100629
  Receipt Date: 20090406
  Transmission Date: 20101027
  Serious: No
  Sender: FDA-Public Use
  Company Number: US-PFIZER INC-2009194937

PATIENT
  Sex: Female

DRUGS (1)
  1. ARTHROTEC [Suspect]
     Dosage: 75 MG, 2X/DAY

REACTIONS (1)
  - DIARRHOEA [None]
